FAERS Safety Report 8101254-0 (Version None)
Quarter: 2012Q1

REPORT INFORMATION
  Report Type: 
  Country: None (occurrence: None)
  Receive Date: 20120129
  Receipt Date: 20110921
  Transmission Date: 20120608
  Serious: Yes (Hospitalization, Other)
  Sender: FDA-Public Use
  Company Number: US-ABBOTT-11P-163-0856191-00

PATIENT
  Sex: Female
  Weight: 121.67 kg

DRUGS (19)
  1. PRILOSEC [Concomitant]
     Indication: GASTROOESOPHAGEAL REFLUX DISEASE
  2. CALCIUM WITH VITAMIN D [Concomitant]
     Indication: MINERAL SUPPLEMENTATION
  3. HUMIRA [Suspect]
     Dates: start: 20110501, end: 20110701
  4. ENALAPRIL [Concomitant]
     Indication: HYPERTENSION
  5. SIMVASTATIN [Concomitant]
     Indication: BLOOD CHOLESTEROL INCREASED
  6. HUMIRA [Suspect]
     Indication: PSORIASIS
     Dates: start: 20080101, end: 20090101
  7. ENBREL [Suspect]
     Indication: PSORIASIS
     Dates: start: 20100101, end: 20110101
  8. FOLIC ACID [Concomitant]
     Indication: VITAMIN SUPPLEMENTATION
  9. ADVAIR DISKUS 100/50 [Concomitant]
     Indication: ASTHMA
  10. ALBUTEROL [Concomitant]
     Indication: ASTHMA
  11. VERAPAMIL [Concomitant]
     Indication: HYPERTENSION
  12. ASPIRIN [Concomitant]
     Indication: CARDIOVASCULAR EVENT PROPHYLAXIS
  13. HYDROCHLOROTHIAZIDE [Concomitant]
     Indication: FLUID RETENTION
  14. METFORMIN HCL [Concomitant]
     Indication: DIABETES MELLITUS
  15. MELOXICAM [Concomitant]
     Indication: PRODUCT USED FOR UNKNOWN INDICATION
  16. SINGULAIR [Concomitant]
     Indication: ASTHMA
  17. SORIATANE [Concomitant]
     Indication: PSORIASIS
  18. POTASSIUM [Concomitant]
     Indication: MINERAL SUPPLEMENTATION
  19. PLAQUINEX [Concomitant]
     Indication: PSORIASIS

REACTIONS (2)
  - DYSPNOEA [None]
  - LYMPHOMA [None]
